FAERS Safety Report 9719184 (Version 3)
Quarter: 2014Q2

REPORT INFORMATION
  Report Type: Spontaneous
  Country: IT (occurrence: IT)
  Receive Date: 20131127
  Receipt Date: 20140424
  Transmission Date: 20141212
  Serious: Yes (Other)
  Sender: FDA-Public Use
  Company Number: PHHY2013IT135784

PATIENT
  Age: 28 Year
  Sex: Female

DRUGS (3)
  1. FLUTAMIDE [Suspect]
     Indication: ACNE
     Dosage: 250 MG, QD
     Route: 048
     Dates: start: 20130401, end: 20131002
  2. FLUTAMIDE [Suspect]
     Indication: OFF LABEL USE
  3. MERCILON [Concomitant]
     Route: 048

REACTIONS (4)
  - Serum ferritin increased [Unknown]
  - Hepatitis [Unknown]
  - Jaundice [Unknown]
  - Hepatic enzyme increased [Unknown]
